FAERS Safety Report 5525273-3 (Version None)
Quarter: 2007Q4

REPORT INFORMATION
  Report Type: 
  Country: None (occurrence: None)
  Receive Date: 20071126
  Receipt Date: 20071116
  Transmission Date: 20080405
  Serious: Yes (Hospitalization)
  Sender: FDA-Public Use
  Company Number: FR-ROCHE-526343

PATIENT
  Age: 74 Year
  Sex: Female
  Weight: 60 kg

DRUGS (4)
  1. BONIVA [Suspect]
     Indication: OSTEOPOROSIS
     Dosage: THERAPY STARTED 10 MONTHS AGO.
     Route: 048
     Dates: end: 20070910
  2. CORDARONE [Concomitant]
  3. ATACAND [Concomitant]
     Indication: HYPERTENSION
     Dosage: DOSE REPORTED AS 16 AT 1 DAILY
  4. PROZAC [Concomitant]
     Dosage: DOSE REPORTED AS 1 QD

REACTIONS (2)
  - FALL [None]
  - HUMERUS FRACTURE [None]
